FAERS Safety Report 8345744-4 (Version None)
Quarter: 2012Q2

REPORT INFORMATION
  Report Type: 
  Country: None (occurrence: None)
  Receive Date: 20120508
  Receipt Date: 20120425
  Transmission Date: 20120825
  Serious: Yes (Hospitalization, Other)
  Sender: FDA-Public Use
  Company Number: US-ELI_LILLY_AND_COMPANY-US201201003108

PATIENT
  Sex: Female

DRUGS (14)
  1. FORTEO [Suspect]
     Indication: OSTEOPOROSIS
     Dosage: 20 UG, QD
     Route: 065
     Dates: start: 20070401, end: 20090401
  2. TYLENOL                                 /SCH/ [Concomitant]
  3. PROLIA [Concomitant]
  4. EVISTA [Suspect]
     Dosage: 60 MG, 2/W
     Route: 048
     Dates: start: 20110909
  5. CARTIA XT [Concomitant]
  6. CALCIUM [Concomitant]
  7. ZINC SULFATE [Concomitant]
  8. DENOSUMAB [Concomitant]
  9. VITAMIN D [Concomitant]
     Dosage: 2000 IU, UNK
  10. MAGNESIUM [Concomitant]
  11. FISH OIL [Concomitant]
  12. FORTEO [Suspect]
     Dosage: 20 UG, QD
     Dates: end: 20120309
  13. EVISTA [Suspect]
     Dosage: 60 MG, 2/W
     Route: 048
     Dates: start: 20111201
  14. ASPIRIN [Concomitant]
     Dosage: 81 MG, QOD

REACTIONS (17)
  - BACK PAIN [None]
  - LUNG DISORDER [None]
  - CARDIAC FAILURE CONGESTIVE [None]
  - COUGH [None]
  - LIMB DISCOMFORT [None]
  - BONE DENSITY DECREASED [None]
  - IRRITABLE BOWEL SYNDROME [None]
  - INTENTIONAL DRUG MISUSE [None]
  - HIP FRACTURE [None]
  - FALL [None]
  - DRUG HYPERSENSITIVITY [None]
  - CHEST PAIN [None]
  - PNEUMONIA [None]
  - ARTHRALGIA [None]
  - ATRIAL FIBRILLATION [None]
  - DRUG PRESCRIBING ERROR [None]
  - BONE PAIN [None]
